FAERS Safety Report 5412078-7 (Version None)
Quarter: 2007Q3

REPORT INFORMATION
  Report Type: 
  Country: None (occurrence: None)
  Receive Date: 20070713
  Receipt Date: 20070327
  Transmission Date: 20080115
  Serious: No
  Sender: FDA-Public Use
  Company Number: 2007SP001104

PATIENT
  Sex: Male
  Weight: 61.6892 kg

DRUGS (1)
  1. LUNESTA [Suspect]
     Indication: INSOMNIA
     Dosage: 1X;ORAL
     Route: 048
     Dates: start: 20070301, end: 20070301

REACTIONS (2)
  - INSOMNIA [None]
  - PARASOMNIA [None]
